FAERS Safety Report 12744920 (Version 1)
Quarter: 2016Q3

REPORT INFORMATION
  Report Type: Report from Study
  Country: US (occurrence: US)
  Receive Date: 20160915
  Receipt Date: 20160915
  Transmission Date: 20161109
  Serious: Yes (Other)
  Sender: FDA-Public Use
  Company Number: US-ROCHE-1186985

PATIENT
  Age: 48 Year
  Sex: Female
  Weight: 71.7 kg

DRUGS (14)
  1. BEVACIZUMAB [Suspect]
     Active Substance: BEVACIZUMAB
     Indication: METASTASES TO PELVIS
     Route: 042
     Dates: start: 20100409
  2. TEMSIROLIMUS [Suspect]
     Active Substance: TEMSIROLIMUS
     Indication: METASTASES TO RETROPERITONEUM
     Route: 042
     Dates: start: 20100312
  3. BEVACIZUMAB [Suspect]
     Active Substance: BEVACIZUMAB
     Indication: METASTASES TO PERITONEUM
  4. BEVACIZUMAB [Suspect]
     Active Substance: BEVACIZUMAB
     Indication: METASTASES TO BONE
  5. TEMSIROLIMUS [Suspect]
     Active Substance: TEMSIROLIMUS
     Indication: METASTASES TO PELVIS
     Route: 042
     Dates: start: 20100409
  6. BEVACIZUMAB [Suspect]
     Active Substance: BEVACIZUMAB
     Indication: METASTASES TO LIVER
  7. BEVACIZUMAB [Suspect]
     Active Substance: BEVACIZUMAB
     Indication: METASTASES TO RETROPERITONEUM
     Route: 042
     Dates: start: 20100312
  8. BEVACIZUMAB [Suspect]
     Active Substance: BEVACIZUMAB
     Indication: METASTASES TO BREAST
  9. TEMSIROLIMUS [Suspect]
     Active Substance: TEMSIROLIMUS
     Indication: CARCINOID TUMOUR
     Dosage: LAST ADMINISTERED DOSE:16/APR/2010
     Route: 042
     Dates: start: 20100212
  10. TEMSIROLIMUS [Suspect]
     Active Substance: TEMSIROLIMUS
     Indication: METASTASES TO PERITONEUM
  11. TEMSIROLIMUS [Suspect]
     Active Substance: TEMSIROLIMUS
     Indication: METASTASES TO BONE
  12. TEMSIROLIMUS [Suspect]
     Active Substance: TEMSIROLIMUS
     Indication: METASTASES TO BREAST
  13. TEMSIROLIMUS [Suspect]
     Active Substance: TEMSIROLIMUS
     Indication: METASTASES TO LIVER
  14. BEVACIZUMAB [Suspect]
     Active Substance: BEVACIZUMAB
     Indication: CARCINOID TUMOUR
     Dosage: LAST ADMINISTERED DOSE: 09/APR/2010
     Route: 042
     Dates: start: 20100212

REACTIONS (7)
  - Upper gastrointestinal haemorrhage [Unknown]
  - Musculoskeletal pain [Unknown]
  - Lower gastrointestinal haemorrhage [Unknown]
  - Proctalgia [Unknown]
  - Haemorrhoids [Unknown]
  - Anaemia [Unknown]
  - Hypokalaemia [Unknown]

NARRATIVE: CASE EVENT DATE: 20100415
